FAERS Safety Report 10370364 (Version 1)
Quarter: 2014Q3

REPORT INFORMATION
  Report Type: Spontaneous
  Country: US (occurrence: None)
  Receive Date: 20140805
  Receipt Date: 20140805
  Transmission Date: 20150326
  Serious: No
  Sender: FDA-Public Use
  Company Number: 149598

PATIENT
  Sex: Female

DRUGS (1)
  1. DACARBAZINE FOR INJ. USP 200MG BEDFORD LABS, INC. [Suspect]
     Active Substance: DACARBAZINE
     Indication: LIPOSARCOMA

REACTIONS (1)
  - Drug ineffective [None]
